FAERS Safety Report 12593200 (Version 1)
Quarter: 2016Q3

REPORT INFORMATION
  Report Type: Spontaneous
  Country: US (occurrence: US)
  Receive Date: 20160726
  Receipt Date: 20160726
  Transmission Date: 20161109
  Serious: No
  Sender: FDA-Public Use
  Company Number: US-ABBVIE-16P-163-1617133-00

PATIENT
  Age: 73 Year
  Sex: Female
  Weight: 64.92 kg

DRUGS (2)
  1. PEPCID [Concomitant]
     Active Substance: FAMOTIDINE
     Indication: GASTROOESOPHAGEAL REFLUX DISEASE
  2. SYNTHROID [Suspect]
     Active Substance: LEVOTHYROXINE SODIUM
     Indication: HYPOTHYROIDISM
     Route: 048
     Dates: start: 1986

REACTIONS (13)
  - Dysgeusia [Recovered/Resolved]
  - Lethargy [Recovered/Resolved]
  - Fatigue [Recovered/Resolved]
  - Nervousness [Recovered/Resolved]
  - Confusional state [Recovered/Resolved]
  - Nervousness [Recovered/Resolved]
  - Dysgeusia [Recovered/Resolved]
  - Heart rate increased [Recovered/Resolved]
  - Balance disorder [Recovered/Resolved]
  - Insomnia [Recovered/Resolved]
  - Insomnia [Recovered/Resolved]
  - Lethargy [Recovered/Resolved]
  - Confusional state [Recovered/Resolved]

NARRATIVE: CASE EVENT DATE: 201604
